FAERS Safety Report 7858002-9 (Version None)
Quarter: 2011Q4

REPORT INFORMATION
  Report Type: 
  Country: None (occurrence: None)
  Receive Date: 20111027
  Receipt Date: 20111012
  Transmission Date: 20120403
  Serious: Yes (Other)
  Sender: FDA-Public Use
  Company Number: US-BAYER-2011-000212

PATIENT
  Age: 29 Year
  Sex: Female
  Weight: 79 kg

DRUGS (12)
  1. PROMETHAZINE [Concomitant]
     Dosage: 25 MG, TID
     Route: 048
     Dates: start: 20081113
  2. MULTI-VITAMINS [Concomitant]
     Dosage: UNK
     Dates: start: 20080701, end: 20080801
  3. CLOMIPHENE CITRATE [Concomitant]
  4. PREVACID [Concomitant]
     Dosage: UNK
     Route: 048
     Dates: start: 20080809
  5. YASMIN [Suspect]
     Indication: ORAL CONTRACEPTION
     Dosage: UNK
     Dates: start: 20070101, end: 20080801
  6. PROTONIX [Concomitant]
     Indication: GASTROOESOPHAGEAL REFLUX DISEASE
     Dosage: 40 MG, QD
     Route: 048
     Dates: start: 20081015, end: 20081215
  7. IBUPROFEN [Concomitant]
     Dosage: UNK
     Route: 048
     Dates: start: 20080809
  8. HYDROCODONE/APPA [Concomitant]
     Dosage: UNK
     Route: 048
     Dates: start: 20081030
  9. DROSPIRENONE AND ETHINYL ESTRADIOL [Suspect]
     Indication: ORAL CONTRACEPTION
     Dosage: UNK
     Dates: start: 20080801, end: 20090101
  10. ASCORBIC ACID [Concomitant]
  11. VICODIN [Concomitant]
     Indication: PAIN
     Dosage: UNK UNK, PRN
     Route: 048
  12. MOTRIN [Concomitant]
     Dosage: UNK UNK, PRN

REACTIONS (3)
  - CHOLECYSTITIS CHRONIC [None]
  - CHOLELITHIASIS [None]
  - ABDOMINAL PAIN UPPER [None]
